FAERS Safety Report 7532823-4 (Version None)
Quarter: 2011Q2

REPORT INFORMATION
  Report Type: 
  Country: None (occurrence: None)
  Receive Date: 20110608
  Receipt Date: 20110602
  Transmission Date: 20111010
  Serious: Yes (Other)
  Sender: FDA-Public Use
  Company Number: US-PFIZER INC-2011005817

PATIENT
  Age: 68 Year
  Sex: Male
  Weight: 81.633 kg

DRUGS (19)
  1. ROBITUSSIN COUGH AND CHEST CONGESTION DM MAX [Suspect]
     Indication: COUGH
     Dosage: 1 FULL DOSAGE CUP ONCE
     Route: 048
     Dates: start: 20110103, end: 20110103
  2. CYMBALTA [Concomitant]
  3. METFORMIN [Concomitant]
  4. PRILOSEC [Concomitant]
  5. SYNTHROID [Concomitant]
  6. FUROSEMIDE [Concomitant]
  7. CINNAMON [Concomitant]
  8. CENTRUM SILVER [Concomitant]
  9. SIMVASTATIN [Concomitant]
  10. OXCARBAZEPINE [Concomitant]
  11. CARVEDILOL [Concomitant]
  12. ROBITUSSIN COUGH AND CHEST CONGESTION DM MAX [Suspect]
     Indication: THROAT IRRITATION
  13. RAMIPRIL [Concomitant]
  14. ACETYLSALICYLIC ACID [Concomitant]
  15. FLAXSEED OIL [Concomitant]
  16. PROPAFENONE [Concomitant]
  17. WARFARIN [Concomitant]
  18. SPIRONOLACTONE [Concomitant]
  19. VITAMIN D [Concomitant]

REACTIONS (6)
  - DYSURIA [None]
  - INCORRECT DOSE ADMINISTERED [None]
  - PRODUCT QUALITY ISSUE [None]
  - DIZZINESS [None]
  - BLOOD PRESSURE INCREASED [None]
  - SOMNOLENCE [None]
